FAERS Safety Report 23446449 (Version 1)
Quarter: 2024Q1

REPORT INFORMATION
  Report Type: Spontaneous
  Country: US (occurrence: None)
  Receive Date: 20240125
  Receipt Date: 20240125
  Transmission Date: 20240409
  Serious: Yes (Hospitalization)
  Sender: FDA-Public Use
  Company Number: None

PATIENT
  Age: 37 Year
  Sex: Female

DRUGS (4)
  1. KESIMPTA [Suspect]
     Active Substance: OFATUMUMAB
     Indication: Multiple sclerosis
     Dosage: FREQUENCY : WEEKLY;?
     Route: 058
     Dates: start: 20240103, end: 20240117
  2. Ketoconazole tablet [Concomitant]
  3. hydrocortisome cream [Concomitant]
  4. FLUCONAZOLE [Concomitant]
     Active Substance: FLUCONAZOLE

REACTIONS (5)
  - Vulvovaginal mycotic infection [None]
  - Fungal skin infection [None]
  - Skin burning sensation [None]
  - Vulvovaginal burning sensation [None]
  - Influenza [None]
